FAERS Safety Report 22965622 (Version 5)
Quarter: 2023Q4

REPORT INFORMATION
  Report Type: Other
  Country: US (occurrence: US)
  Receive Date: 20230921
  Receipt Date: 20231222
  Transmission Date: 20240109
  Serious: Yes (Other)
  Sender: FDA-Public Use
  Company Number: US-GLK-002241

PATIENT
  Age: 31 Year
  Sex: Male

DRUGS (3)
  1. PHOTREXA VISCOUS [Suspect]
     Active Substance: RIBOFLAVIN 5^-PHOSPHATE SODIUM
     Indication: Keratoconus
     Dosage: EVERY 2 MINUTES FOR 20 MINUTES, LEFT EYE
     Route: 047
     Dates: start: 20230802, end: 20230802
  2. PHOTREXA [Suspect]
     Active Substance: RIBOFLAVIN 5^-PHOSPHATE SODIUM
     Indication: Keratoconus
     Dosage: 2 DROPS INITIALLY EVERY 30 SEC FOR 10 MIN, THEN EVERY 10 SEC, LEFT EYE?TOTAL DURATION: 15 TO 20 MIN
     Route: 047
     Dates: start: 20230802, end: 20230802
  3. PROPARACAINE [Concomitant]
     Active Substance: PROPARACAINE
     Indication: Product used for unknown indication
     Dates: start: 20230802, end: 20230802

REACTIONS (6)
  - Keratoplasty [Recovered/Resolved]
  - Corneal oedema [Recovered/Resolved]
  - Injury corneal [Recovered/Resolved]
  - Eye pain [Recovering/Resolving]
  - Incorrect product administration duration [Unknown]
  - Inappropriate schedule of product administration [Unknown]

NARRATIVE: CASE EVENT DATE: 20230801
